FAERS Safety Report 7720811-4 (Version None)
Quarter: 2011Q3

REPORT INFORMATION
  Report Type: 
  Country: None (occurrence: None)
  Receive Date: 20110830
  Receipt Date: 20110830
  Transmission Date: 20111222
  Serious: Yes (Disabling)
  Sender: FDA-Public Use
  Company Number: None

PATIENT
  Age: 57 Year
  Sex: Female
  Weight: 165 kg

DRUGS (2)
  1. ASMANEX TWISTHALER [Suspect]
     Indication: ASTHMA
     Dosage: 1 (2 PUFFS) X DAILY INHALE
     Route: 055
  2. LEVOXYL [Concomitant]

REACTIONS (4)
  - BLOOD POTASSIUM ABNORMAL [None]
  - URINE OUTPUT INCREASED [None]
  - RENAL IMPAIRMENT [None]
  - BLOOD SODIUM ABNORMAL [None]
